FAERS Safety Report 9525426 (Version 1)
Quarter: 2013Q1

REPORT INFORMATION
  Report Type: Spontaneous
  Country: US (occurrence: None)
  Receive Date: 20130305
  Receipt Date: 20130305
  Transmission Date: 20140127
  Serious: Yes (Hospitalization)
  Sender: FDA-Public Use
  Company Number: 163-21880-12012751

PATIENT
  Age: 63 Year
  Sex: Male

DRUGS (6)
  1. REVLIMID (LENALIDOMIDE) (15 MILLIGRAM, CAPSULES) [Suspect]
     Indication: PLASMA CELL MYELOMA
     Route: 048
     Dates: start: 201111, end: 201111
  2. VELCADE [Concomitant]
  3. DECADRON [Concomitant]
  4. MAXZIDE (DYAZIDE) (UNKNOWN) [Concomitant]
  5. AMLODIPINE (AMLODIPINE) (UNKNOWN) [Concomitant]
  6. NOVOLIN R (INSULIN HUMAN) (UNKNOWN) [Concomitant]

REACTIONS (1)
  - Pneumonia [None]
